FAERS Safety Report 4512902-6 (Version None)
Quarter: 2004Q4

REPORT INFORMATION
  Report Type: 
  Country: None (occurrence: None)
  Receive Date: 20041123
  Receipt Date: 20041123
  Transmission Date: 20050328
  Serious: No
  Sender: FDA-Public Use
  Company Number: None

PATIENT
  Sex: Male
  Weight: 90 kg

DRUGS (12)
  1. ZOSYN [Suspect]
     Indication: PNEUMONIA
     Dosage: 3.375 GM Q 6 H IV
     Route: 042
     Dates: start: 20041111
  2. MELOXICAM [Concomitant]
  3. PREDNISONE [Concomitant]
  4. OMPERIZONE [Concomitant]
  5. DILTIAZEM [Concomitant]
  6. FOLIC ACID [Concomitant]
  7. HYDROCHLOROTHIAZIDE [Concomitant]
  8. AZITRIOPINE [Concomitant]
  9. KCL TAB [Concomitant]
  10. TYLENOL (CAPLET) [Concomitant]
  11. SODIUM CHLORIDE [Concomitant]
  12. HEPARIN [Concomitant]

REACTIONS (1)
  - RASH [None]
